FAERS Safety Report 4559409-8 (Version None)
Quarter: 2005Q1

REPORT INFORMATION
  Report Type: 
  Country: None (occurrence: None)
  Receive Date: 20050120
  Receipt Date: 20050120
  Transmission Date: 20050727
  Serious: Yes (Hospitalization)
  Sender: FDA-Public Use
  Company Number: None

PATIENT
  Age: 54 Year
  Sex: Male

DRUGS (1)
  1. IBUPROFEN [Suspect]
     Indication: TOOTHACHE
     Dosage: ^A LOT^/RECENTLY

REACTIONS (4)
  - ABDOMINAL PAIN [None]
  - AGITATION [None]
  - HAEMATEMESIS [None]
  - PAIN [None]
